FAERS Safety Report 9921952 (Version 1)
Quarter: 2014Q1

REPORT INFORMATION
  Report Type: Spontaneous
  Country: FR (occurrence: FR)
  Receive Date: 20140225
  Receipt Date: 20140225
  Transmission Date: 20141002
  Serious: Yes (Hospitalization)
  Sender: FDA-Public Use
  Company Number: PHHY2014FR017239

PATIENT
  Sex: Female

DRUGS (7)
  1. ISONIAZID [Suspect]
     Indication: PULMONARY TUBERCULOSIS
     Dosage: 350 MG, QD
  2. ISONIAZID [Suspect]
     Dosage: 100 MG, QD
  3. RIFINAH [Suspect]
     Indication: PULMONARY TUBERCULOSIS
     Dosage: , INH: 150 MG; RIFAMPIN: 300 MG2 DF, QD
  4. RIFINAH [Suspect]
     Dosage: 100 MG, QD
  5. RIFAMPICIN [Concomitant]
     Indication: PULMONARY TUBERCULOSIS
  6. ETHAMBUTOL [Concomitant]
     Indication: PULMONARY TUBERCULOSIS
  7. PYRAZINAMIDE [Concomitant]
     Indication: PULMONARY TUBERCULOSIS

REACTIONS (5)
  - General physical health deterioration [Recovering/Resolving]
  - Drug level increased [Recovering/Resolving]
  - Nausea [Recovering/Resolving]
  - Vomiting [Recovering/Resolving]
  - Overdose [Recovering/Resolving]
